FAERS Safety Report 14019304 (Version 1)
Quarter: 2017Q3

REPORT INFORMATION
  Report Type: Spontaneous
  Country: US (occurrence: US)
  Receive Date: 20170928
  Receipt Date: 20170928
  Transmission Date: 20171128
  Serious: No
  Sender: FDA-Public Use
  Company Number: US-BION-006397

PATIENT
  Sex: Male

DRUGS (1)
  1. ANTI-DIARRHEAL LOPERAMIDE HCL [Suspect]
     Active Substance: LOPERAMIDE HYDROCHLORIDE
     Indication: DIARRHOEA
     Dosage: 2 SOFTGELS AFTER THE FIRST LOOSE STOOL; 1 SOFTGEL AFTER EACH SUBSEQUENT LOOSE STOOL
     Route: 048
     Dates: start: 20170601

REACTIONS (2)
  - Wrong technique in product usage process [Not Recovered/Not Resolved]
  - Oral discomfort [Recovered/Resolved]

NARRATIVE: CASE EVENT DATE: 20170601
